FAERS Safety Report 19723638 (Version 5)
Quarter: 2022Q2

REPORT INFORMATION
  Report Type: Report from Study
  Country: US (occurrence: US)
  Receive Date: 20210820
  Receipt Date: 20220413
  Transmission Date: 20220721
  Serious: No
  Sender: FDA-Public Use
  Company Number: NVSC2021US187458

PATIENT
  Sex: Male

DRUGS (2)
  1. ENTRESTO [Suspect]
     Active Substance: SACUBITRIL\VALSARTAN
     Indication: Product used for unknown indication
     Dosage: 0.5 DF, BID (12/13 MG)
     Route: 048
     Dates: start: 20210804
  2. ENTRESTO [Suspect]
     Active Substance: SACUBITRIL\VALSARTAN
     Dosage: 0.5 DF, BID ( (24/26MG)
     Route: 048

REACTIONS (3)
  - Dizziness [Unknown]
  - Product dose omission in error [Unknown]
  - Wrong technique in product usage process [Unknown]
